FAERS Safety Report 18990917 (Version 5)
Quarter: 2021Q2

REPORT INFORMATION
  Report Type: Report from Study
  Country: BF (occurrence: BF)
  Receive Date: 20210310
  Receipt Date: 20210609
  Transmission Date: 20210717
  Serious: Yes (Other)
  Sender: FDA-Public Use
  Company Number: NVSC2021BF041484

PATIENT
  Age: 2 Year
  Sex: Female

DRUGS (2)
  1. LITACOLD [Concomitant]
     Indication: RHINITIS
     Dosage: 10 ML, TID
     Route: 048
     Dates: start: 20210213, end: 20210217
  2. COARTEM [Suspect]
     Active Substance: ARTEMETHER\LUMEFANTRINE
     Indication: PLASMODIUM FALCIPARUM INFECTION
     Dosage: UNK MG, BID
     Route: 048
     Dates: start: 20210122

REACTIONS (1)
  - Blood alkaline phosphatase increased [Recovering/Resolving]

NARRATIVE: CASE EVENT DATE: 20210219
